FAERS Safety Report 24021620 (Version 1)
Quarter: 2024Q2

REPORT INFORMATION
  Report Type: Spontaneous
  Country: US (occurrence: US)
  Receive Date: 20240627
  Receipt Date: 20240627
  Transmission Date: 20240715
  Serious: Yes (Death, Life-Threatening, Other)
  Sender: FDA-Public Use
  Company Number: US-MALLINCKRODT-MNK202404097

PATIENT
  Sex: Male

DRUGS (2)
  1. NITRIC OXIDE [Suspect]
     Active Substance: NITRIC OXIDE
     Indication: Newborn persistent pulmonary hypertension
     Dosage: UNKNOWN
     Route: 055
  2. OXYGEN [Concomitant]
     Active Substance: OXYGEN
     Dosage: UNKNOWN

REACTIONS (10)
  - Alveolar capillary dysplasia [Fatal]
  - Subdural haemorrhage [Unknown]
  - Pulmonary oedema [Unknown]
  - Small intestinal obstruction [Unknown]
  - Hypoplastic left heart syndrome [Unknown]
  - Aortic valve disease [Unknown]
  - Patent ductus arteriosus [Unknown]
  - Intestinal malrotation [Unknown]
  - Annular pancreas [Unknown]
  - Drug ineffective [Unknown]
